FAERS Safety Report 24359885 (Version 1)
Quarter: 2024Q3

REPORT INFORMATION
  Report Type: Spontaneous
  Country: JP (occurrence: JP)
  Receive Date: 20240924
  Receipt Date: 20240924
  Transmission Date: 20241016
  Serious: Yes (Hospitalization, Other)
  Sender: GLAXOSMITHKLINE
  Company Number: JP-GSKJP-JP2024JPN074500AA

PATIENT

DRUGS (11)
  1. DAPRODUSTAT [Suspect]
     Active Substance: DAPRODUSTAT
     Indication: Nephrogenic anaemia
     Dosage: 4 MG, 1D
     Route: 048
     Dates: start: 20240322, end: 20240401
  2. DAPRODUSTAT [Suspect]
     Active Substance: DAPRODUSTAT
     Dosage: 6 MG, 1D
     Route: 048
     Dates: start: 20240402, end: 20240409
  3. DISTIGMINE BROMIDE [Concomitant]
     Active Substance: DISTIGMINE BROMIDE
     Indication: Urinary retention
     Dosage: 5 MG, 1D
     Route: 048
     Dates: start: 20240321, end: 20240410
  4. URAPIDIL [Concomitant]
     Active Substance: URAPIDIL
     Indication: Urinary retention
     Dosage: 30 MG, 1D
     Route: 048
     Dates: start: 20240316, end: 20240410
  5. VONOPRAZAN FUMARATE [Concomitant]
     Active Substance: VONOPRAZAN FUMARATE
     Indication: Gastrooesophageal reflux disease
     Dosage: 10 MG, 1D
     Route: 048
  6. CALONAL [Concomitant]
     Active Substance: ACETAMINOPHEN
     Dosage: 400 MG, 1D
     Route: 048
     Dates: start: 20240316
  7. RAMELTEON [Concomitant]
     Active Substance: RAMELTEON
     Indication: Insomnia
     Dosage: 8 MG, 1D
     Route: 048
     Dates: start: 20240308
  8. ROSUVASTATIN [Concomitant]
     Active Substance: ROSUVASTATIN\ROSUVASTATIN CALCIUM
     Indication: Hyperlipidaemia
     Dosage: 2.5 MG, ONCE QOD
     Route: 048
  9. FOLIC ACID [Concomitant]
     Active Substance: FOLIC ACID
     Indication: Anaemia macrocytic
     Dosage: 5 MG, TID
     Route: 048
     Dates: start: 20240309, end: 20240409
  10. AUGMENTIN [Concomitant]
     Active Substance: AMOXICILLIN\CLAVULANATE POTASSIUM
     Indication: Bacteraemia
     Dosage: 250 MG, TID
     Route: 048
     Dates: start: 20240329, end: 20240406
  11. AMOXICILLIN [Concomitant]
     Active Substance: AMOXICILLIN
     Indication: Bacteraemia
     Dosage: 250 MG, TID
     Route: 048
     Dates: start: 20240329, end: 20240406

REACTIONS (3)
  - Cerebral infarction [Recovered/Resolved]
  - Gait disturbance [Recovered/Resolved]
  - Headache [Recovered/Resolved]

NARRATIVE: CASE EVENT DATE: 20240409
